FAERS Safety Report 6183212-9 (Version None)
Quarter: 2009Q2

REPORT INFORMATION
  Report Type: 
  Country: None (occurrence: None)
  Receive Date: 20090506
  Receipt Date: 20090421
  Transmission Date: 20091009
  Serious: Yes (Death, Hospitalization)
  Sender: FDA-Public Use
  Company Number: PCERE 349

PATIENT
  Age: 62 Year
  Sex: Male
  Weight: 82 kg

DRUGS (2)
  1. CEREDASE [Suspect]
     Indication: GAUCHER'S DISEASE
     Dosage: 7.5 U/KG, 3X/W, INTRAVENOUS
     Route: 042
     Dates: start: 19950420, end: 19961001
  2. IBUPROFEN [Concomitant]

REACTIONS (2)
  - HEPATIC NEOPLASM MALIGNANT [None]
  - METASTASES TO PERITONEUM [None]
